FAERS Safety Report 10169808 (Version 1)
Quarter: 2014Q2

REPORT INFORMATION
  Report Type: Spontaneous
  Country: IE (occurrence: IE)
  Receive Date: 20140513
  Receipt Date: 20140513
  Transmission Date: 20141212
  Serious: Yes (Hospitalization)
  Sender: FDA-Public Use
  Company Number: IE-ASTRAZENECA-2014SE31167

PATIENT
  Age: 7 Month
  Sex: Female

DRUGS (13)
  1. SYNAGIS [Suspect]
     Indication: ENCEPHALOPATHY
     Route: 030
     Dates: start: 20140120
  2. SYNAGIS [Suspect]
     Indication: ENCEPHALOPATHY
     Route: 030
     Dates: start: 20140430
  3. KEPPRA [Concomitant]
     Indication: PRODUCT USED FOR UNKNOWN INDICATION
  4. CLONAZEPAM [Concomitant]
     Indication: PRODUCT USED FOR UNKNOWN INDICATION
  5. PHENOBARBITONE [Concomitant]
     Indication: PRODUCT USED FOR UNKNOWN INDICATION
  6. FOLIC ACID [Concomitant]
     Indication: PRODUCT USED FOR UNKNOWN INDICATION
  7. GALFER [Concomitant]
     Indication: PRODUCT USED FOR UNKNOWN INDICATION
  8. BIOTON [Concomitant]
     Indication: PRODUCT USED FOR UNKNOWN INDICATION
  9. PYRIDOXAL PHOSPHATE [Concomitant]
     Indication: PRODUCT USED FOR UNKNOWN INDICATION
  10. TOPAMAX [Concomitant]
     Indication: PRODUCT USED FOR UNKNOWN INDICATION
  11. ZONEGRAN [Concomitant]
     Indication: PRODUCT USED FOR UNKNOWN INDICATION
  12. ZANTAC [Concomitant]
     Indication: PRODUCT USED FOR UNKNOWN INDICATION
  13. VITAMIN D [Concomitant]
     Indication: PRODUCT USED FOR UNKNOWN INDICATION

REACTIONS (4)
  - Convulsion [Recovering/Resolving]
  - Gastrooesophageal reflux disease [Recovering/Resolving]
  - Rash [Recovering/Resolving]
  - Off label use [Unknown]
